FAERS Safety Report 22152515 (Version 1)
Quarter: 2023Q1

REPORT INFORMATION
  Report Type: Spontaneous
  Country: JP (occurrence: JP)
  Receive Date: 20230329
  Receipt Date: 20230329
  Transmission Date: 20230417
  Serious: Yes (Death, Other)
  Sender: FDA-Public Use
  Company Number: JP-CHUGAI-2023002585

PATIENT
  Age: 9 Decade
  Sex: Male

DRUGS (3)
  1. GAZYVA [Suspect]
     Active Substance: OBINUTUZUMAB
     Indication: Product used for unknown indication
     Dosage: UNK
     Route: 041
     Dates: start: 20230104, end: 20230112
  2. GAZYVA [Suspect]
     Active Substance: OBINUTUZUMAB
     Dosage: UNK
     Route: 042
     Dates: start: 20230126
  3. BENDAMUSTINE HYDROCHLORIDE [Concomitant]
     Active Substance: BENDAMUSTINE HYDROCHLORIDE
     Route: 041

REACTIONS (3)
  - Stress cardiomyopathy [Fatal]
  - Progressive multifocal leukoencephalopathy [Recovered/Resolved]
  - Vitamin B complex deficiency [Recovered/Resolved]

NARRATIVE: CASE EVENT DATE: 20230112
